FAERS Safety Report 19403316 (Version 1)
Quarter: 2021Q2

REPORT INFORMATION
  Report Type: Spontaneous
  Country: US (occurrence: US)
  Receive Date: 20210610
  Receipt Date: 20210610
  Transmission Date: 20210717
  Serious: No
  Sender: FDA-Public Use
  Company Number: US-GALDERMA-US2021008051

PATIENT
  Age: 21 Year
  Sex: Male

DRUGS (2)
  1. EPIDUO FORTE [Suspect]
     Active Substance: ADAPALENE\BENZOYL PEROXIDE
     Indication: ACNE
     Dosage: (ADAPALENE 0.3%/BENZOYL PEROXIDE 2.5%)
     Route: 061
     Dates: start: 202010
  2. EPIDUO FORTE [Suspect]
     Active Substance: ADAPALENE\BENZOYL PEROXIDE
     Dosage: (ADAPALENE 0.3%/BENZOYL PEROXIDE 2.5%)
     Route: 061
     Dates: end: 202011

REACTIONS (5)
  - Erythema [Not Recovered/Not Resolved]
  - Rash [Not Recovered/Not Resolved]
  - Intentional product misuse [Recovered/Resolved]
  - Intentional underdose [Recovered/Resolved]
  - Pruritus [Not Recovered/Not Resolved]

NARRATIVE: CASE EVENT DATE: 202010
